FAERS Safety Report 16720613 (Version 1)
Quarter: 2019Q4

REPORT INFORMATION
  Report Type: Spontaneous
  Country: US (occurrence: US)
  Receive Date: 20190819
  Receipt Date: 20190819
  Transmission Date: 20200122
  Serious: No
  Sender: FDA-Public Use
  Company Number: None

PATIENT
  Age: 9 Year
  Sex: Male
  Weight: 38.25 kg

DRUGS (1)
  1. METHYLPHENIDATE ER [Suspect]
     Active Substance: METHYLPHENIDATE
     Indication: ATTENTION DEFICIT/HYPERACTIVITY DISORDER
     Dosage: ?          QUANTITY:1 TABLET(S);?
     Route: 048
     Dates: start: 20190819, end: 20190819

REACTIONS (6)
  - Trismus [None]
  - Tic [None]
  - Compulsive lip biting [None]
  - Excessive eye blinking [None]
  - Compulsive cheek biting [None]
  - Product substitution issue [None]

NARRATIVE: CASE EVENT DATE: 20190819
